FAERS Safety Report 18057821 (Version 1)
Quarter: 2020Q3

REPORT INFORMATION
  Report Type: Spontaneous
  Country: US (occurrence: US)
  Receive Date: 20200723
  Receipt Date: 20200723
  Transmission Date: 20201103
  Serious: Yes (Death)
  Sender: FDA-Public Use
  Company Number: US-ROCHE-2646869

PATIENT
  Sex: Male

DRUGS (9)
  1. BREO ELLIPTA [Concomitant]
     Active Substance: FLUTICASONE FUROATE\VILANTEROL TRIFENATATE
  2. ASPIRIN. [Concomitant]
     Active Substance: ASPIRIN
  3. CANDESARTAN. [Concomitant]
     Active Substance: CANDESARTAN
  4. NORVASC [Concomitant]
     Active Substance: AMLODIPINE BESYLATE
  5. ESBRIET [Suspect]
     Active Substance: PIRFENIDONE
     Indication: HYPERLIPIDAEMIA
     Dosage: TAKE 1 CAPSULE BY MOUTH THREE TIMES A DAY
     Route: 048
  6. MONTELUKAST [Concomitant]
     Active Substance: MONTELUKAST SODIUM
  7. AZELASTINE. [Concomitant]
     Active Substance: AZELASTINE HYDROCHLORIDE
  8. SIMVASTATIN. [Concomitant]
     Active Substance: SIMVASTATIN
  9. CETRIZINE [Concomitant]
     Active Substance: CETIRIZINE HYDROCHLORIDE

REACTIONS (3)
  - Death [Fatal]
  - Off label use [Unknown]
  - Intentional product use issue [Unknown]
